FAERS Safety Report 9789818 (Version 1)
Quarter: 2013Q4

REPORT INFORMATION
  Report Type: Spontaneous
  Country: JP (occurrence: JP)
  Receive Date: 20131231
  Receipt Date: 20131231
  Transmission Date: 20140711
  Serious: Yes (Other)
  Sender: FDA-Public Use
  Company Number: JP-ROCHE-1325647

PATIENT
  Age: 60 Year
  Sex: Male

DRUGS (2)
  1. XELODA [Suspect]
     Indication: ANAL ABSCESS
     Dosage: DOSAGE IS UNCERTAIN.
     Route: 048
  2. ELPLAT [Concomitant]
     Indication: ANAL ABSCESS
     Dosage: DOSAGE IS UNCERTAIN.
     Route: 041

REACTIONS (3)
  - Dermatitis [Unknown]
  - Gastrointestinal stoma necrosis [Unknown]
  - Malignant pleural effusion [Unknown]
